FAERS Safety Report 13201449 (Version 1)
Quarter: 2017Q1

REPORT INFORMATION
  Report Type: Spontaneous
  Country: US (occurrence: US)
  Receive Date: 20170208
  Receipt Date: 20170208
  Transmission Date: 20170428
  Serious: No
  Sender: FDA-Public Use
  Company Number: US-AMGEN-USASP2016069163

PATIENT

DRUGS (3)
  1. NEULASTA [Suspect]
     Active Substance: PEGFILGRASTIM
     Indication: PRODUCT USED FOR UNKNOWN INDICATION
     Dosage: UNK
     Route: 065
  2. TAXOL [Concomitant]
     Active Substance: PACLITAXEL
     Dosage: UNK
  3. IXEMPRA [Concomitant]
     Active Substance: IXABEPILONE
     Dosage: UNK

REACTIONS (9)
  - Pain [Unknown]
  - Weight decreased [Unknown]
  - Discomfort [Unknown]
  - Bone pain [Unknown]
  - Fatigue [Unknown]
  - Decreased appetite [Unknown]
  - Drug ineffective [Unknown]
  - Nausea [Unknown]
  - Anaemia [Unknown]
